FAERS Safety Report 8767045 (Version 2)
Quarter: 2012Q4

REPORT INFORMATION
  Report Type: 
  Country: US (occurrence: US)
  Receive Date: 20120904
  Receipt Date: 20121114
  Transmission Date: 20130627
  Serious: Yes (Hospitalization, Other)
  Sender: FDA-Public Use
  Company Number: US-BAYER-2012-089376

PATIENT
  Age: 35 Year
  Sex: Female

DRUGS (13)
  1. YASMIN [Suspect]
     Indication: PREMENSTRUAL SYNDROME
     Dosage: UNK
     Dates: start: 20050908, end: 2006
  2. IMITREX [Concomitant]
     Dosage: UNK UNK, PRN
  3. ALEVE [Concomitant]
     Dosage: UNK UNK, PRN
  4. FLEXERIL [Concomitant]
  5. HYDROCODONE [Concomitant]
  6. MOTRIN [Concomitant]
  7. PERCOCET [Concomitant]
  8. PROZAC [Concomitant]
  9. SKELAXIN [Concomitant]
  10. TOPAMAX [Concomitant]
  11. XANAX [Concomitant]
  12. DARVOCET [Concomitant]
  13. NEXIUM [Concomitant]

REACTIONS (10)
  - Gallbladder injury [None]
  - Cholecystitis chronic [Recovered/Resolved]
  - Injury [None]
  - Pain [None]
  - Emotional distress [None]
  - General physical health deterioration [None]
  - Anxiety [None]
  - Pain [None]
  - Depression [None]
  - Scar [None]
